FAERS Safety Report 20113758 (Version 1)
Quarter: 2021Q4

REPORT INFORMATION
  Report Type: Spontaneous
  Country: CA (occurrence: CA)
  Receive Date: 20211125
  Receipt Date: 20211125
  Transmission Date: 20220303
  Serious: Yes (Other)
  Sender: FDA-Public Use
  Company Number: CA-009507513-2111CAN007384

PATIENT
  Age: 67 Year
  Sex: Female
  Weight: 104 kg

DRUGS (4)
  1. PRINIVIL [Suspect]
     Active Substance: LISINOPRIL
     Indication: Product used for unknown indication
     Route: 048
  2. INFLIXIMAB [Suspect]
     Active Substance: INFLIXIMAB
     Indication: Crohn^s disease
     Dosage: 500 MILLIGRAM, EVERY 8 WEEKS
     Route: 042
  3. INFLIXIMAB [Suspect]
     Active Substance: INFLIXIMAB
     Dosage: 500 MILLIGRAM, EVERY 8 WEEKS
     Route: 042
  4. INFLIXIMAB [Suspect]
     Active Substance: INFLIXIMAB
     Dosage: 500 MILLIGRAM, EVERY 8 WEEKS
     Route: 042

REACTIONS (6)
  - Cataract [Unknown]
  - Chest pain [Unknown]
  - Fatigue [Unknown]
  - Off label use [Unknown]
  - Pain [Unknown]
  - Pneumonia [Unknown]
